FAERS Safety Report 20870170 (Version 2)
Quarter: 2022Q2

REPORT INFORMATION
  Report Type: Spontaneous
  Country: US (occurrence: US)
  Receive Date: 20220525
  Receipt Date: 20220601
  Transmission Date: 20220721
  Serious: No
  Sender: FDA-Public Use
  Company Number: US-BIOVITRUM-2022US06197

PATIENT
  Age: 0 Year
  Sex: Male

DRUGS (3)
  1. SYNAGIS [Suspect]
     Active Substance: PALIVIZUMAB
     Indication: Illness
     Dosage: 100 MG AND 50 MG VIAL.
     Route: 030
     Dates: start: 202201
  2. SYNAGIS [Suspect]
     Active Substance: PALIVIZUMAB
     Indication: Double outlet right ventricle
  3. SYNAGIS [Suspect]
     Active Substance: PALIVIZUMAB
     Indication: Pulmonary valve stenosis congenital

REACTIONS (1)
  - Surgery [Unknown]

NARRATIVE: CASE EVENT DATE: 20220413
